FAERS Safety Report 10070640 (Version 1)
Quarter: 2014Q2

REPORT INFORMATION
  Report Type: Spontaneous
  Country: US (occurrence: US)
  Receive Date: 20140410
  Receipt Date: 20140410
  Transmission Date: 20141212
  Serious: No
  Sender: FDA-Public Use
  Company Number: US-GILEAD-2014-0099191

PATIENT
  Sex: Female

DRUGS (2)
  1. SOVALDI [Suspect]
     Indication: HEPATITIS C
     Dosage: UNK
     Route: 065
  2. RIBAVIRIN [Concomitant]

REACTIONS (4)
  - Nausea [Unknown]
  - Vomiting [Unknown]
  - Weight decreased [Unknown]
  - Drug intolerance [Unknown]
